FAERS Safety Report 8233887-5 (Version None)
Quarter: 2012Q1

REPORT INFORMATION
  Report Type: 
  Country: None (occurrence: None)
  Receive Date: 20120323
  Receipt Date: 20120323
  Transmission Date: 20120608
  Serious: Yes (Hospitalization)
  Sender: FDA-Public Use
  Company Number: None

PATIENT
  Age: 84 Year
  Sex: Male
  Weight: 71 kg

DRUGS (2)
  1. DOXEPIN HCL [Suspect]
     Indication: DEPRESSION
     Dosage: 50 MG HS PO
     Route: 048
     Dates: start: 20101101, end: 20120316
  2. AMITRIPTYLINE HCL [Suspect]
     Indication: DEPRESSION
     Dosage: 10 MG HS PO
     Route: 048
     Dates: start: 20111101, end: 20120316

REACTIONS (1)
  - SYNCOPE [None]
